FAERS Safety Report 26095780 (Version 1)
Quarter: 2025Q4

REPORT INFORMATION
  Report Type: Spontaneous
  Country: TW (occurrence: TW)
  Receive Date: 20251127
  Receipt Date: 20251127
  Transmission Date: 20260117
  Serious: Yes (Death, Other)
  Sender: AMGEN
  Company Number: TW-AMGEN-TWNSP2025230790

PATIENT

DRUGS (5)
  1. PROLIA [Suspect]
     Active Substance: DENOSUMAB
     Indication: Product used for unknown indication
     Dosage: UNK
     Route: 065
  2. ADALIMUMAB [Suspect]
     Active Substance: ADALIMUMAB
     Indication: Stevens-Johnson syndrome
     Dosage: UNK
     Route: 065
  3. ADALIMUMAB [Suspect]
     Active Substance: ADALIMUMAB
     Indication: Toxic epidermal necrolysis
  4. ETANERCEPT [Suspect]
     Active Substance: ETANERCEPT
     Indication: Stevens-Johnson syndrome
     Dosage: UNK
     Route: 065
  5. ETANERCEPT [Suspect]
     Active Substance: ETANERCEPT
     Indication: Toxic epidermal necrolysis

REACTIONS (15)
  - Stevens-Johnson syndrome [Fatal]
  - Toxic epidermal necrolysis [Fatal]
  - Conjunctivalisation [Unknown]
  - Symblepharon [Unknown]
  - Punctate keratitis [Unknown]
  - Corneal epithelium defect [Unknown]
  - Corneal opacity [Unknown]
  - Corneal neovascularisation [Unknown]
  - Limbal stem cell deficiency [Unknown]
  - Conjunctival hyperaemia [Unknown]
  - Trichiasis [Unknown]
  - Meibomian gland dysfunction [Unknown]
  - Eyelid disorder [Unknown]
  - Off label use [Unknown]
  - Corneal disorder [Unknown]
